FAERS Safety Report 21694141 (Version 1)
Quarter: 2022Q4

REPORT INFORMATION
  Report Type: Spontaneous
  Country: US (occurrence: None)
  Receive Date: 20221206
  Receipt Date: 20221206
  Transmission Date: 20230113
  Serious: Yes (Hospitalization)
  Sender: FDA-Public Use
  Company Number: None

PATIENT
  Age: 67 Year
  Sex: Male
  Weight: 68.8 kg

DRUGS (1)
  1. DOXERCALCIFEROL [Suspect]
     Active Substance: DOXERCALCIFEROL
     Indication: Hyperparathyroidism secondary
     Dosage: 6 UG MICROGRAMS 3 TIMES A WEEK INTRAVENOUS BOLOUS?
     Route: 040
     Dates: start: 20221120, end: 20221130

REACTIONS (2)
  - Unresponsive to stimuli [None]
  - Hyperhidrosis [None]

NARRATIVE: CASE EVENT DATE: 20221130
